FAERS Safety Report 8675904 (Version 2)
Quarter: 2012Q4

REPORT INFORMATION
  Report Type: 
  Country: BR (occurrence: BR)
  Receive Date: 20120720
  Receipt Date: 20121018
  Transmission Date: 20130627
  Serious: Yes (Hospitalization, Other)
  Sender: FDA-Public Use
  Company Number: PHHY2012BR016047

PATIENT
  Age: 75 None
  Sex: Male
  Weight: 71 kg

DRUGS (5)
  1. XOLAIR [Suspect]
     Indication: ASTHMA
  2. FORASEQ [Suspect]
     Indication: DYSPNOEA
     Dosage: 1 DF, BID
  3. BAMIFIX [Concomitant]
     Indication: DYSPNOEA
     Dosage: 1 DF, BID
  4. LOSARTAN [Concomitant]
     Indication: BLOOD PRESSURE ABNORMAL
     Dosage: 1 DF, UNK
  5. DISGREN [Concomitant]
     Indication: DYSPHONIA
     Dosage: 1 DF, BID

REACTIONS (8)
  - Pneumonia [Recovering/Resolving]
  - Asthma [Recovering/Resolving]
  - Ischaemia [Recovering/Resolving]
  - Blood pressure increased [Recovering/Resolving]
  - Dysphonia [Not Recovered/Not Resolved]
  - Nasopharyngitis [Recovering/Resolving]
  - Malaise [Recovering/Resolving]
  - Cough [Recovering/Resolving]
